FAERS Safety Report 23020317 (Version 2)
Quarter: 2023Q4

REPORT INFORMATION
  Report Type: Spontaneous
  Country: DO (occurrence: DO)
  Receive Date: 20231003
  Receipt Date: 20231108
  Transmission Date: 20240110
  Serious: No
  Sender: FDA-Public Use
  Company Number: DO-PFIZER INC-PV202300152233

PATIENT
  Age: 7 Year
  Sex: Female

DRUGS (1)
  1. GENOTROPIN [Suspect]
     Active Substance: SOMATROPIN
     Dosage: 0.9 MG, 1X/DAY

REACTIONS (1)
  - Device information output issue [Unknown]

NARRATIVE: CASE EVENT DATE: 20230906
